FAERS Safety Report 20103227 (Version 6)
Quarter: 2022Q1

REPORT INFORMATION
  Report Type: Spontaneous
  Country: US (occurrence: US)
  Receive Date: 20211123
  Receipt Date: 20220128
  Transmission Date: 20220423
  Serious: No
  Sender: FDA-Public Use
  Company Number: US-NEUROCRINE BIOSCIENCES INC.-2021NBI06575

PATIENT

DRUGS (3)
  1. INGREZZA [Suspect]
     Active Substance: VALBENAZINE
     Indication: Tardive dyskinesia
     Dosage: 80 MILLIGRAM, QD
     Route: 048
     Dates: start: 2021
  2. INGREZZA [Suspect]
     Active Substance: VALBENAZINE
     Dosage: 40 MILLIGRAM, QD, ONCE DAILY
     Route: 048
     Dates: start: 20211103, end: 202111
  3. INGREZZA [Suspect]
     Active Substance: VALBENAZINE
     Dosage: 60 MILLIGRAM, QD
     Route: 048
     Dates: start: 20211125

REACTIONS (21)
  - Feeling abnormal [Unknown]
  - Stress [Unknown]
  - Depression [Not Recovered/Not Resolved]
  - Weight decreased [Not Recovered/Not Resolved]
  - Dizziness [Unknown]
  - Fatigue [Not Recovered/Not Resolved]
  - Balance disorder [Unknown]
  - Somnolence [Not Recovered/Not Resolved]
  - Adverse drug reaction [Not Recovered/Not Resolved]
  - Anxiety [Not Recovered/Not Resolved]
  - Restlessness [Not Recovered/Not Resolved]
  - Constipation [Not Recovered/Not Resolved]
  - Dry mouth [Not Recovered/Not Resolved]
  - Tremor [Not Recovered/Not Resolved]
  - Insomnia [Not Recovered/Not Resolved]
  - Amnesia [Not Recovered/Not Resolved]
  - Dyskinesia [Unknown]
  - Middle insomnia [Unknown]
  - Disturbance in attention [Unknown]
  - Off label use [Unknown]
  - Product dose omission in error [Unknown]

NARRATIVE: CASE EVENT DATE: 20210101
